FAERS Safety Report 5059740-6 (Version None)
Quarter: 2006Q3

REPORT INFORMATION
  Report Type: 
  Country: None (occurrence: None)
  Receive Date: 20060724
  Receipt Date: 20060703
  Transmission Date: 20061208
  Serious: Yes (Life-Threatening)
  Sender: FDA-Public Use
  Company Number: FR-BRISTOL-MYERS SQUIBB COMPANY-13448600

PATIENT
  Sex: Male

DRUGS (6)
  1. VASTEN TABS 20 MG [Suspect]
     Route: 048
     Dates: end: 20060320
  2. RIFATER [Suspect]
     Indication: BONE TUBERCULOSIS
     Route: 048
     Dates: start: 20060202, end: 20060320
  3. MYAMBUTOL [Suspect]
     Indication: BONE TUBERCULOSIS
     Route: 048
     Dates: start: 20060202, end: 20060320
  4. STILNOX [Suspect]
     Route: 048
     Dates: end: 20060320
  5. ASPEGIC 1000 [Concomitant]
     Route: 048
  6. TRAMADOL HCL [Concomitant]
     Route: 048

REACTIONS (1)
  - AGRANULOCYTOSIS [None]
